FAERS Safety Report 16303572 (Version 2)
Quarter: 2019Q2

REPORT INFORMATION
  Report Type: Spontaneous
  Country: AU (occurrence: AU)
  Receive Date: 20190513
  Receipt Date: 20190524
  Transmission Date: 20190711
  Serious: Yes (Congenital Anomaly, Other)
  Sender: FDA-Public Use
  Company Number: AU-ROCHE-2316246

PATIENT
  Sex: Male
  Weight: 2.88 kg

DRUGS (3)
  1. OCREVUS [Suspect]
     Active Substance: OCRELIZUMAB
     Indication: PRODUCT USED FOR UNKNOWN INDICATION
     Route: 064
     Dates: start: 20181128
  2. OCREVUS [Suspect]
     Active Substance: OCRELIZUMAB
     Route: 064
     Dates: start: 20181211
  3. CARBIMAZOLE [Concomitant]
     Active Substance: CARBIMAZOLE
     Route: 064

REACTIONS (4)
  - Respiratory distress [Unknown]
  - B-lymphocyte count decreased [Unknown]
  - Foetal exposure during pregnancy [Unknown]
  - Cardiac septal defect [Unknown]
